FAERS Safety Report 10599056 (Version 2)
Quarter: 2015Q1

REPORT INFORMATION
  Report Type: Spontaneous
  Country: JP (occurrence: JP)
  Receive Date: 20141121
  Receipt Date: 20150128
  Transmission Date: 20150720
  Serious: Yes (Death, Life-Threatening, Hospitalization)
  Sender: FDA-Public Use
  Company Number: JP-ACTELION-A-CH2014-108194

PATIENT
  Age: 64 Year
  Sex: Female
  Weight: 44 kg

DRUGS (11)
  1. TRACLEER [Suspect]
     Active Substance: BOSENTAN\BOSENTAN MONOHYDRATE
     Indication: PULMONARY ARTERIAL HYPERTENSION
     Dosage: 62.5 MG, BID
     Route: 048
     Dates: start: 20141010, end: 20141023
  2. TRACLEER [Suspect]
     Active Substance: BOSENTAN\BOSENTAN MONOHYDRATE
     Dosage: 31.25 MG, BID
     Route: 048
     Dates: start: 20140930, end: 20141009
  3. ALLOPURINOL. [Concomitant]
     Active Substance: ALLOPURINOL
  4. PITAVASTATIN CALCIUM [Concomitant]
     Active Substance: PITAVASTATIN CALCIUM
  5. MAGNESIUM OXIDE. [Concomitant]
     Active Substance: MAGNESIUM OXIDE
  6. OXYGEN. [Concomitant]
     Active Substance: OXYGEN
  7. AMLODIPINE BESILATE [Concomitant]
     Active Substance: AMLODIPINE BESYLATE
  8. SENNOSIDE [Concomitant]
     Active Substance: SENNOSIDES
  9. PREDNISOLONE. [Concomitant]
     Active Substance: PREDNISOLONE
  10. PRECIPITATED CALCIUM CARBONATE [Concomitant]
     Active Substance: CALCIUM CARBONATE
  11. LANTHANUM CARBONATE. [Concomitant]
     Active Substance: LANTHANUM CARBONATE

REACTIONS (6)
  - Cardio-respiratory arrest [Fatal]
  - White blood cell count decreased [Recovering/Resolving]
  - Dyspnoea [Fatal]
  - Aortic dissection [Fatal]
  - Pancytopenia [Recovering/Resolving]
  - Cardiac vein dissection [Fatal]

NARRATIVE: CASE EVENT DATE: 20141024
